FAERS Safety Report 4555297-4 (Version None)
Quarter: 2005Q1

REPORT INFORMATION
  Report Type: 
  Country: None (occurrence: None)
  Receive Date: 20041227
  Receipt Date: 20040611
  Transmission Date: 20050727
  Serious: No
  Sender: FDA-Public Use
  Company Number: US079972

PATIENT
  Age: 51 Year
  Sex: Female

DRUGS (4)
  1. ARANESP [Suspect]
     Indication: ANAEMIA OF MALIGNANT DISEASE
     Dosage: 200 MCG, 1 IN 2 WEEKS, SC
     Route: 058
     Dates: start: 20040528
  2. GEMCITABINE [Concomitant]
  3. CARBOPLATIN [Concomitant]
  4. TRASTUZUMAB [Concomitant]

REACTIONS (2)
  - INJECTION SITE REACTION [None]
  - RASH PRURITIC [None]
